FAERS Safety Report 11238058 (Version 1)
Quarter: 2015Q3

REPORT INFORMATION
  Report Type: Report from Study
  Country: GB (occurrence: US)
  Receive Date: 20150703
  Receipt Date: 20150703
  Transmission Date: 20151125
  Serious: Yes (Other)
  Sender: FDA-Public Use
  Company Number: US-ASTRAZENECA-2015SE63620

PATIENT
  Age: 20 Year
  Sex: Female

DRUGS (2)
  1. VANDETANIB. [Suspect]
     Active Substance: VANDETANIB
     Indication: MEDULLARY THYROID CANCER
     Dosage: 200MG - 5 DAYS PER WEEK
     Route: 048
     Dates: start: 20141010
  2. VANDETANIB. [Suspect]
     Active Substance: VANDETANIB
     Indication: MEDULLARY THYROID CANCER
     Route: 048
     Dates: start: 201012, end: 201405

REACTIONS (1)
  - Respiratory disorder [Recovered/Resolved]

NARRATIVE: CASE EVENT DATE: 20140812
